FAERS Safety Report 25737599 (Version 1)
Quarter: 2025Q3

REPORT INFORMATION
  Report Type: Spontaneous
  Country: US (occurrence: US)
  Receive Date: 20250828
  Receipt Date: 20250828
  Transmission Date: 20251021
  Serious: Yes (Other)
  Sender: BEIGENE
  Company Number: US-BEIGENE-BGN-2025-014234

PATIENT
  Age: 69 Year

DRUGS (8)
  1. BRUKINSA [Suspect]
     Active Substance: ZANUBRUTINIB
     Indication: Mantle cell lymphoma
     Dosage: UNK, BID
     Route: 048
  2. BRUKINSA [Suspect]
     Active Substance: ZANUBRUTINIB
     Dosage: UNK, BID
  3. BRUKINSA [Suspect]
     Active Substance: ZANUBRUTINIB
     Dosage: UNK, BID
  4. BRUKINSA [Suspect]
     Active Substance: ZANUBRUTINIB
     Dosage: UNK, BID
     Route: 048
  5. BRUKINSA [Suspect]
     Active Substance: ZANUBRUTINIB
     Dosage: UNK, BID
     Route: 048
  6. BRUKINSA [Suspect]
     Active Substance: ZANUBRUTINIB
     Dosage: UNK, BID
  7. BRUKINSA [Suspect]
     Active Substance: ZANUBRUTINIB
     Dosage: UNK, BID
  8. BRUKINSA [Suspect]
     Active Substance: ZANUBRUTINIB
     Dosage: UNK, BID
     Route: 048

REACTIONS (2)
  - Mantle cell lymphoma recurrent [Not Recovered/Not Resolved]
  - Infection [Not Recovered/Not Resolved]
